FAERS Safety Report 15775146 (Version 2)
Quarter: 2019Q1

REPORT INFORMATION
  Report Type: Spontaneous
  Country: US (occurrence: US)
  Receive Date: 20181231
  Receipt Date: 20190102
  Transmission Date: 20190417
  Serious: Yes (Hospitalization, Other)
  Sender: FDA-Public Use
  Company Number: US-JNJFOC-20181231337

PATIENT
  Age: 74 Year
  Sex: Male

DRUGS (4)
  1. IMODIUM [Suspect]
     Active Substance: LOPERAMIDE HYDROCHLORIDE
     Route: 065
  2. IMODIUM [Suspect]
     Active Substance: LOPERAMIDE HYDROCHLORIDE
     Indication: DIARRHOEA
     Route: 065
  3. DILTIAZEM. [Concomitant]
     Active Substance: DILTIAZEM
     Route: 065
  4. WARFARIN [Concomitant]
     Active Substance: WARFARIN
     Route: 065

REACTIONS (18)
  - Insomnia [Unknown]
  - Diaphragmatic disorder [Unknown]
  - Excessive cerumen production [Unknown]
  - Frequent bowel movements [Unknown]
  - Productive cough [Not Recovered/Not Resolved]
  - Dyspnoea [Not Recovered/Not Resolved]
  - Pulmonary arterial hypertension [Unknown]
  - Idiopathic pulmonary fibrosis [Unknown]
  - Arrhythmia [Unknown]
  - Oedema [Unknown]
  - Oxygen consumption increased [Unknown]
  - Bronchiectasis [Unknown]
  - Depression [Unknown]
  - Diarrhoea [Unknown]
  - Constipation [Unknown]
  - Syncope [Unknown]
  - Atrial flutter [Unknown]
  - Dyspepsia [Unknown]

NARRATIVE: CASE EVENT DATE: 20180618
